FAERS Safety Report 18971898 (Version 1)
Quarter: 2021Q1

REPORT INFORMATION
  Report Type: Spontaneous
  Country: US (occurrence: US)
  Receive Date: 20210305
  Receipt Date: 20210305
  Transmission Date: 20210420
  Serious: No
  Sender: FDA-Public Use
  Company Number: US-JNJFOC-20210300598

PATIENT
  Age: 71 Year
  Sex: Female
  Weight: 156.63 kg

DRUGS (1)
  1. XARELTO [Suspect]
     Active Substance: RIVAROXABAN
     Indication: PERIPHERAL VASCULAR DISORDER
     Route: 048
     Dates: start: 20210226

REACTIONS (4)
  - Product use in unapproved indication [Unknown]
  - Pollakiuria [Unknown]
  - Blood urine present [Unknown]
  - Off label use [Unknown]

NARRATIVE: CASE EVENT DATE: 202102
